FAERS Safety Report 5257379-0 (Version None)
Quarter: 2007Q1

REPORT INFORMATION
  Report Type: 
  Country: None (occurrence: None)
  Receive Date: 20070307
  Receipt Date: 20060627
  Transmission Date: 20070707
  Serious: Yes (Other)
  Sender: FDA-Public Use
  Company Number: GB-MERCK-0702USA03817

PATIENT
  Age: 50 Year
  Sex: Male

DRUGS (9)
  1. PRINIVIL [Suspect]
     Route: 048
  2. ASCORBIC ACID [Suspect]
     Route: 065
  3. FERROUS SULFATE [Suspect]
     Route: 065
  4. FOLIC ACID [Suspect]
     Route: 065
  5. HYDRODIURIL [Suspect]
     Route: 048
  6. NIACINAMIDE [Suspect]
     Route: 065
  7. PYRIDOXINE HYDROCHLORIDE [Suspect]
     Route: 065
  8. RIBOFLAVIN [Suspect]
     Route: 065
  9. THIAMINE MONONITRATE [Suspect]
     Route: 065

REACTIONS (1)
  - SWOLLEN TONGUE [None]
